FAERS Safety Report 19992421 (Version 3)
Quarter: 2021Q4

REPORT INFORMATION
  Report Type: Report from Study
  Country: US (occurrence: US)
  Receive Date: 20211025
  Receipt Date: 20211202
  Transmission Date: 20220303
  Serious: Yes (Other)
  Sender: FDA-Public Use
  Company Number: US-TAKEDA-2021TUS064449

PATIENT
  Age: 59 Year
  Sex: Male
  Weight: 231 kg

DRUGS (10)
  1. HUMAN IMMUNOGLOBULIN G [Suspect]
     Active Substance: HUMAN IMMUNOGLOBULIN G
     Indication: Hypogammaglobulinaemia
     Dosage: 35 GRAM, Q4WEEKS
     Route: 042
     Dates: start: 20201006
  2. HUMAN IMMUNOGLOBULIN G [Suspect]
     Active Substance: HUMAN IMMUNOGLOBULIN G
     Indication: Non-Hodgkin^s lymphoma
  3. REVLIMID [Concomitant]
     Active Substance: LENALIDOMIDE
  4. LEVOTHYROXINE [Concomitant]
     Active Substance: LEVOTHYROXINE
  5. POTASSIUM BROMIDE [Concomitant]
     Active Substance: POTASSIUM BROMIDE
  6. SILDENAFIL [Concomitant]
     Active Substance: SILDENAFIL
  7. ASPIRIN [Concomitant]
     Active Substance: ASPIRIN
  8. DIETARY SUPPLEMENT\PROBIOTICS [Concomitant]
     Active Substance: DIETARY SUPPLEMENT\PROBIOTICS
  9. METOPROLOL SUCCINATE [Concomitant]
     Active Substance: METOPROLOL SUCCINATE
  10. GAZYVA [Concomitant]
     Active Substance: OBINUTUZUMAB

REACTIONS (11)
  - Neuropathy peripheral [Unknown]
  - Pain [Unknown]
  - Speech disorder [Unknown]
  - Flatulence [Unknown]
  - Muscle spasms [Unknown]
  - Bladder dilatation [Unknown]
  - Abdominal distension [Unknown]
  - Thyroid disorder [Unknown]
  - Bladder discomfort [Unknown]
  - Prostatic disorder [Unknown]
  - Product dose omission issue [Unknown]

NARRATIVE: CASE EVENT DATE: 20211001
